FAERS Safety Report 5273868-7 (Version None)
Quarter: 2007Q1

REPORT INFORMATION
  Report Type: 
  Country: None (occurrence: None)
  Receive Date: 20070323
  Receipt Date: 20070312
  Transmission Date: 20070707
  Serious: Yes (Hospitalization)
  Sender: FDA-Public Use
  Company Number: JP-ROCHE-487710

PATIENT
  Age: 30 Year
  Sex: Male

DRUGS (3)
  1. CLONAZEPAM [Suspect]
     Indication: DRUG USE FOR UNKNOWN INDICATION
     Route: 048
  2. CLONAZEPAM [Suspect]
     Route: 048
  3. HORIZON [Concomitant]
     Route: 048

REACTIONS (2)
  - LOSS OF CONSCIOUSNESS [None]
  - OVERDOSE [None]
